FAERS Safety Report 18632002 (Version 1)
Quarter: 2020Q4

REPORT INFORMATION
  Report Type: Spontaneous
  Country: US (occurrence: US)
  Receive Date: 20201218
  Receipt Date: 20201218
  Transmission Date: 20210114
  Serious: No
  Sender: FDA-Public Use
  Company Number: US-SPECGX-T202000748

PATIENT
  Sex: Male

DRUGS (3)
  1. FENTANYL CITRATE. [Suspect]
     Active Substance: FENTANYL CITRATE
     Indication: PAIN
     Dosage: 800 MICROGRAM
     Route: 065
  2. FENTANYL CITRATE. [Suspect]
     Active Substance: FENTANYL CITRATE
     Indication: TREMOR
     Dosage: 600 MICROGRAM
     Route: 065
  3. FENTANYL CITRATE. [Suspect]
     Active Substance: FENTANYL CITRATE
     Indication: SEIZURE
     Dosage: 300-400 MICROGRAM
     Route: 065

REACTIONS (4)
  - Product use in unapproved indication [Unknown]
  - Wrong technique in product usage process [Unknown]
  - Headache [Unknown]
  - Pain [Unknown]
